FAERS Safety Report 5130151-8 (Version None)
Quarter: 2006Q4

REPORT INFORMATION
  Report Type: 
  Country: None (occurrence: None)
  Receive Date: 20061013
  Receipt Date: 20061004
  Transmission Date: 20070319
  Serious: Yes (Other)
  Sender: FDA-Public Use
  Company Number: 2006075339

PATIENT
  Age: 74 Year
  Sex: Female
  Weight: 74.3899 kg

DRUGS (4)
  1. LIPITOR [Suspect]
     Indication: BLOOD CHOLESTEROL INCREASED
     Dosage: 40 MG (40 MG, 1 IN 1 D)
  2. LIPITOR [Suspect]
     Indication: BLOOD TRIGLYCERIDES INCREASED
     Dosage: 40 MG (40 MG, 1 IN 1 D)
  3. IBUPROFEN [Concomitant]
  4. HYDROCODONE (HYDROCODONE) [Concomitant]

REACTIONS (2)
  - MUSCLE SPASMS [None]
  - MUSCULOSKELETAL PAIN [None]
